FAERS Safety Report 4684847-2 (Version None)
Quarter: 2005Q2

REPORT INFORMATION
  Report Type: 
  Country: None (occurrence: None)
  Receive Date: 20050531
  Receipt Date: 20040930
  Transmission Date: 20051028
  Serious: Yes (Other)
  Sender: FDA-Public Use
  Company Number: USA041079941

PATIENT
  Sex: Female

DRUGS (3)
  1. ZYPREXA [Suspect]
     Dosage: 25 MG DAY
     Dates: start: 20030101, end: 20030101
  2. HALDOL (DALOPERIDOL DECANOATE) [Concomitant]
  3. CLONAZEPAM [Concomitant]

REACTIONS (2)
  - BLOOD GLUCOSE INCREASED [None]
  - PRESCRIBED OVERDOSE [None]
